FAERS Safety Report 26178437 (Version 1)
Quarter: 2025Q4

REPORT INFORMATION
  Report Type: Spontaneous
  Country: ZA (occurrence: ZA)
  Receive Date: 20251219
  Receipt Date: 20251219
  Transmission Date: 20260117
  Serious: Yes (Other)
  Sender: MERCK SHARP & DOHME LLC
  Company Number: ZA-009507513-2360787

PATIENT
  Age: 51 Year
  Sex: Male

DRUGS (5)
  1. KEYTRUDA [Suspect]
     Active Substance: PEMBROLIZUMAB
     Indication: Renal cell carcinoma
     Dosage: TIME INTERVAL: CYCLICAL: 1 CYCLE
     Dates: start: 20251209, end: 20251209
  2. INLYTA [Suspect]
     Active Substance: AXITINIB
     Indication: Renal cell carcinoma
     Dates: start: 20251209
  3. IVERMECTIN [Concomitant]
     Active Substance: IVERMECTIN
     Dates: start: 202510
  4. FENBENDAZOLE [Concomitant]
     Active Substance: FENBENDAZOLE
     Dates: start: 202510
  5. CANNABIDIOL\HERBALS [Concomitant]
     Active Substance: CANNABIDIOL\HERBALS
     Dates: start: 202510

REACTIONS (4)
  - Altered state of consciousness [Unknown]
  - Abnormal behaviour [Unknown]
  - Insomnia [Unknown]
  - Somnambulism [Unknown]

NARRATIVE: CASE EVENT DATE: 20251210
